FAERS Safety Report 4497815-0 (Version None)
Quarter: 2004Q4

REPORT INFORMATION
  Report Type: 
  Country: None (occurrence: None)
  Receive Date: 20041104
  Receipt Date: 20041029
  Transmission Date: 20050328
  Serious: Yes (Death)
  Sender: FDA-Public Use
  Company Number: 2004IC000888

PATIENT
  Age: 81 Year
  Sex: Male

DRUGS (9)
  1. FLUOROURACIL [Suspect]
     Indication: OESOPHAGEAL CARCINOMA
     Dosage: 1550 MG; DAILY; INTRAVENOUS
     Route: 042
     Dates: start: 20030325, end: 20030328
  2. CISPLATIN [Suspect]
     Indication: OESOPHAGEAL CARCINOMA
     Dosage: 48 MG; DAILY; INTRAVENOUS
     Route: 042
     Dates: start: 20030325, end: 20030328
  3. LASIX [Suspect]
     Dosage: ORAL
     Route: 048
     Dates: start: 20030325, end: 20030328
  4. ISOPTIN [Concomitant]
  5. ZYLORIC [Concomitant]
  6. OGAST [Concomitant]
  7. TARDYFERON [Concomitant]
  8. PERMIXON [Concomitant]
  9. DIFFU K [Concomitant]

REACTIONS (11)
  - ANURIA [None]
  - BLOOD CREATININE INCREASED [None]
  - CARDIAC FAILURE [None]
  - DEHYDRATION [None]
  - DIABETES MELLITUS [None]
  - DIARRHOEA [None]
  - HYPOKALAEMIA [None]
  - HYPONATRAEMIA [None]
  - RENAL FAILURE [None]
  - RESPIRATORY FAILURE [None]
  - VOMITING [None]
